FAERS Safety Report 11302324 (Version 1)
Quarter: 2015Q3

REPORT INFORMATION
  Report Type: Spontaneous
  Country: US (occurrence: US)
  Receive Date: 20150723
  Receipt Date: 20150723
  Transmission Date: 20151125
  Serious: No
  Sender: FDA-Public Use
  Company Number: US-PFIZER INC-2015240649

PATIENT
  Age: 53 Year
  Sex: Female

DRUGS (6)
  1. LYRICA [Suspect]
     Active Substance: PREGABALIN
     Indication: OSTEOARTHRITIS
  2. LYRICA [Suspect]
     Active Substance: PREGABALIN
     Indication: FIBROMYALGIA
     Dosage: 50 MG, 3X/DAY
     Dates: end: 201507
  3. SKELAXIN [Suspect]
     Active Substance: METAXALONE
     Indication: INTERVERTEBRAL DISC DEGENERATION
  4. LYRICA [Suspect]
     Active Substance: PREGABALIN
     Indication: INTERVERTEBRAL DISC DEGENERATION
  5. SKELAXIN [Suspect]
     Active Substance: METAXALONE
     Indication: FIBROMYALGIA
     Dosage: 3200 MG, DAILY (800 MG 4 TABLETS A DAY)
  6. SKELAXIN [Suspect]
     Active Substance: METAXALONE
     Indication: OSTEOARTHRITIS

REACTIONS (7)
  - Oral herpes [Unknown]
  - Gingival pain [Unknown]
  - Gingival blister [Unknown]
  - Vaginal mucosal blistering [Unknown]
  - Drug ineffective [Unknown]
  - Expired product administered [Unknown]
  - Physical product label issue [Unknown]
